FAERS Safety Report 6150378-6 (Version None)
Quarter: 2009Q2

REPORT INFORMATION
  Report Type: 
  Country: None (occurrence: None)
  Receive Date: 20090409
  Receipt Date: 20090402
  Transmission Date: 20091009
  Serious: Yes (Other)
  Sender: FDA-Public Use
  Company Number: US-AVENTIS-200912852US

PATIENT
  Sex: Male

DRUGS (2)
  1. APIDRA [Suspect]
     Dosage: DOSE: VIA PUMP
     Route: 058
  2. APIDRA [Suspect]
     Dosage: DOSE: UNK
     Route: 058

REACTIONS (4)
  - BLOOD GLUCOSE INCREASED [None]
  - DRUG INEFFECTIVE [None]
  - KETOSIS [None]
  - OVERDOSE [None]
